FAERS Safety Report 7065337-9 (Version None)
Quarter: 2010Q4

REPORT INFORMATION
  Report Type: 
  Country: None (occurrence: None)
  Receive Date: 20101027
  Receipt Date: 20101025
  Transmission Date: 20110411
  Serious: Yes (Hospitalization, Other)
  Sender: FDA-Public Use
  Company Number: CZ-BRACCO-000012

PATIENT
  Sex: Female
  Weight: 64 kg

DRUGS (1)
  1. MULTIHANCE [Suspect]
     Indication: NUCLEAR MAGNETIC RESONANCE IMAGING
     Dosage: 500 MMOL
     Route: 040
     Dates: start: 20101019, end: 20101019

REACTIONS (5)
  - CHILLS [None]
  - DRUG ERUPTION [None]
  - ERYTHEMA [None]
  - PRURITUS [None]
  - URTICARIA [None]
